FAERS Safety Report 16720475 (Version 5)
Quarter: 2020Q1

REPORT INFORMATION
  Report Type: Report from Study
  Country: US (occurrence: US)
  Receive Date: 20190820
  Receipt Date: 20200110
  Transmission Date: 20200409
  Serious: Yes (Other)
  Sender: FDA-Public Use
  Company Number: US-PFIZER INC-2019328529

PATIENT
  Age: 56 Year
  Sex: Female

DRUGS (2)
  1. IBRANCE [Suspect]
     Active Substance: PALBOCICLIB
     Indication: BREAST CANCER FEMALE
     Dosage: 125 MG DAILY, CYCLIC (DAILY FOR 21 DAYS ON AND 7 DAYS OFF)
     Route: 048
     Dates: start: 20190717
  2. FASLODEX [Concomitant]
     Active Substance: FULVESTRANT
     Dosage: UNK
     Route: 030

REACTIONS (13)
  - Diarrhoea [Unknown]
  - Nausea [Unknown]
  - Intentional dose omission [Unknown]
  - Bone marrow failure [Unknown]
  - Fatigue [Unknown]
  - Epistaxis [Recovering/Resolving]
  - Nasopharyngitis [Recovered/Resolved]
  - Alopecia [Unknown]
  - Cough [Unknown]
  - Sneezing [Unknown]
  - White blood cell count decreased [Recovering/Resolving]
  - Infection [Recovered/Resolved]
  - Dry mouth [Unknown]

NARRATIVE: CASE EVENT DATE: 2019
